FAERS Safety Report 23670700 (Version 2)
Quarter: 2024Q2

REPORT INFORMATION
  Report Type: Spontaneous
  Country: US (occurrence: None)
  Receive Date: 20240326
  Receipt Date: 20240403
  Transmission Date: 20240716
  Serious: Yes (Hospitalization, Other)
  Sender: FDA-Public Use
  Company Number: US-MLMSERVICE-20240314-4884380-1

PATIENT
  Age: 4 Decade
  Sex: Female
  Weight: 73.5 kg

DRUGS (11)
  1. BINIMETINIB [Suspect]
     Active Substance: BINIMETINIB
     Indication: Metastases to skin
     Route: 048
     Dates: start: 20220401, end: 20220913
  2. BINIMETINIB [Suspect]
     Active Substance: BINIMETINIB
     Indication: Metastases to skin
     Dosage: DOSE REDUCED DUE TO HEPATITIS
     Route: 048
     Dates: start: 20220923, end: 20221012
  3. BINIMETINIB [Suspect]
     Active Substance: BINIMETINIB
     Indication: Metastases to skin
     Dosage: RESUMED FULL DOSING DUE TO IMPROVEMENT IN HEPATIC FUNCTION.
     Route: 048
     Dates: start: 20221013, end: 20221027
  4. BINIMETINIB [Suspect]
     Active Substance: BINIMETINIB
     Indication: Metastases to skin
     Dosage: DOSE REDUCED DUE TO RECURRENT HEPATITIS.
     Route: 048
     Dates: start: 20221105, end: 20230322
  5. IPILIMUMAB [Suspect]
     Active Substance: IPILIMUMAB
     Indication: Metastatic malignant melanoma
     Dosage: 1 CYCLE
     Route: 040
     Dates: start: 20220211
  6. ENCORAFENIB [Suspect]
     Active Substance: ENCORAFENIB
     Indication: Malignant melanoma stage IV
     Route: 048
     Dates: start: 20220401, end: 20220913
  7. ENCORAFENIB [Suspect]
     Active Substance: ENCORAFENIB
     Indication: Malignant melanoma stage IV
     Dosage: DOSE REDUCED DUE TO HEPATITIS
     Route: 048
     Dates: start: 20220923, end: 20221012
  8. ENCORAFENIB [Suspect]
     Active Substance: ENCORAFENIB
     Indication: Malignant melanoma stage IV
     Dosage: RESUMED FULL DOSING DUE TO IMPROVEMENT IN HEPATIC FUNCTION.
     Route: 048
     Dates: start: 20221013, end: 20221027
  9. ENCORAFENIB [Suspect]
     Active Substance: ENCORAFENIB
     Indication: Malignant melanoma stage IV
     Dosage: DOSE REDUCED DUE TO RECURRENT HEPATITIS.
     Route: 048
     Dates: start: 20221105, end: 20230322
  10. CEFTRIAXONE [Suspect]
     Active Substance: CEFTRIAXONE\CEFTRIAXONE SODIUM
     Indication: Streptococcal endocarditis
     Dosage: ()
     Dates: start: 2022, end: 202209
  11. NIVOLUMAB [Suspect]
     Active Substance: NIVOLUMAB
     Indication: Metastatic malignant melanoma
     Dosage: 1 CYCLE
     Route: 040
     Dates: start: 20220211

REACTIONS (1)
  - Acute febrile neutrophilic dermatosis [Recovered/Resolved]

NARRATIVE: CASE EVENT DATE: 20220913
